FAERS Safety Report 19699209 (Version 1)
Quarter: 2021Q3

REPORT INFORMATION
  Report Type: Spontaneous
  Country: US (occurrence: US)
  Receive Date: 20210813
  Receipt Date: 20210813
  Transmission Date: 20211014
  Serious: No
  Sender: FDA-Public Use
  Company Number: US-AMRYT PHARMACEUTICALS DAC-AEGR005157

PATIENT
  Sex: Male
  Weight: 61.22 kg

DRUGS (1)
  1. JUXTAPID [Suspect]
     Active Substance: LOMITAPIDE MESYLATE
     Indication: TYPE IIA HYPERLIPIDAEMIA
     Dosage: 5 MILLIGRAM, QD HS
     Route: 048
     Dates: start: 20181214

REACTIONS (4)
  - Weight abnormal [Unknown]
  - Intentional dose omission [Unknown]
  - Diet noncompliance [Unknown]
  - Diarrhoea [Unknown]
